FAERS Safety Report 5396209-3 (Version None)
Quarter: 2007Q3

REPORT INFORMATION
  Report Type: 
  Country: None (occurrence: None)
  Receive Date: 20070725
  Receipt Date: 20070718
  Transmission Date: 20080115
  Serious: Yes (Other)
  Sender: FDA-Public Use
  Company Number: PHEH2007US09493

PATIENT
  Sex: Male

DRUGS (11)
  1. ZELNORM [Suspect]
     Indication: CONSTIPATION
     Dosage: 6 MG, UNK
     Dates: start: 20060601
  2. DIOVAN [Concomitant]
  3. NEXIUM [Concomitant]
     Dosage: 40 MG, UNK
  4. LIPITOR [Concomitant]
     Dosage: 20 MG, UNK
  5. METOCLOPRAMID [Concomitant]
     Dosage: 70 MG, UNK
  6. TORSEMIDE [Concomitant]
     Dosage: 20 MG, UNK
  7. METANX [Concomitant]
  8. ZYRTEC [Concomitant]
     Dosage: 10 MG, UNK
  9. DIGITEK [Concomitant]
     Dosage: 0.125 MG, UNK
  10. TOPROL-XL [Concomitant]
     Dosage: 25 MG, UNK
  11. METOPROLOL SUCCINATE [Concomitant]
     Dosage: 25 MG, UNK

REACTIONS (3)
  - CARDIAC OPERATION [None]
  - CARDIAC STRESS TEST ABNORMAL [None]
  - CATHETERISATION CARDIAC [None]
